FAERS Safety Report 8877837 (Version 1)
Quarter: 2012Q4

REPORT INFORMATION
  Report Type: 
  Country: US (occurrence: US)
  Receive Date: 20121025
  Receipt Date: 20121025
  Transmission Date: 20130627
  Serious: No
  Sender: FDA-Public Use
  Company Number: US-AMGEN-USASP2012019954

PATIENT
  Age: 60 Year
  Sex: Female
  Weight: 108.84 kg

DRUGS (8)
  1. ENBREL [Suspect]
     Indication: PRODUCT USED FOR UNKNOWN INDICATION
     Dosage: 50 mg, qwk
     Route: 058
  2. NOVOLOG [Concomitant]
     Dosage: UNK
  3. LANTUS [Concomitant]
     Dosage: UNK
  4. ARAVA [Concomitant]
     Dosage: 10 mg, UNK
  5. NEXIUM                             /01479302/ [Concomitant]
     Dosage: 20 mg, UNK
  6. VITAMIN D /00107901/ [Concomitant]
     Dosage: 1000 IU, UNK
  7. CALCIUM + VIT D [Concomitant]
     Dosage: UNK
  8. MULTIVITAMIN                       /00097801/ [Concomitant]
     Dosage: UNK

REACTIONS (1)
  - Bronchitis [Unknown]
